FAERS Safety Report 7809691-6 (Version None)
Quarter: 2011Q4

REPORT INFORMATION
  Report Type: 
  Country: None (occurrence: None)
  Receive Date: 20111012
  Receipt Date: 20111004
  Transmission Date: 20120403
  Serious: Yes (Other)
  Sender: FDA-Public Use
  Company Number: US-GLAXOSMITHKLINE-A0948529A

PATIENT
  Age: 48 Year
  Sex: Female

DRUGS (3)
  1. PROMACTA [Suspect]
     Indication: THROMBOCYTOPENIA
     Route: 048
  2. ROMIPLOSTIM [Concomitant]
     Indication: THROMBOCYTOPENIA
  3. CORTICOSTEROIDS [Concomitant]
     Indication: THROMBOCYTOPENIA

REACTIONS (2)
  - BURNING SENSATION [None]
  - PLATELET COUNT INCREASED [None]
